FAERS Safety Report 12560765 (Version 1)
Quarter: 2016Q3

REPORT INFORMATION
  Report Type: Spontaneous
  Country: US (occurrence: None)
  Receive Date: 20160714
  Receipt Date: 20160714
  Transmission Date: 20161109
  Serious: Yes (Life-Threatening, Disabling, Other)
  Sender: FDA-Public Use
  Company Number: None

PATIENT
  Age: 30 Year
  Sex: Female
  Weight: 53.07 kg

DRUGS (11)
  1. ALEVE [Concomitant]
     Active Substance: NAPROXEN SODIUM
  2. VITAMIN D [Concomitant]
     Active Substance: CHOLECALCIFEROL
  3. ANTIBIOTICS [Concomitant]
     Active Substance: UNSPECIFIED INGREDIENT
  4. STEROID PACK [Concomitant]
  5. TYLENOL [Concomitant]
     Active Substance: ACETAMINOPHEN
  6. NIACIN. [Concomitant]
     Active Substance: NIACIN
  7. VITAMIN B12 [Concomitant]
     Active Substance: CYANOCOBALAMIN
  8. MULTI-VITAMINS (CALCIUM PANTOTHENATE, FOLIC ACID, VITAMINS NOS) [Concomitant]
     Active Substance: VITAMINS
  9. VITAMIN B-6 [Concomitant]
     Active Substance: PYRIDOXINE
  10. NEXPLANON [Suspect]
     Active Substance: ETONOGESTREL
     Indication: MENORRHAGIA
     Dosage: 68MG RODIOPAQUE GOOD FOR 3 YEARS BIRTH CONTROL IMPLANT IMPLANTED IN MY UPPER LEFT ARM
     Dates: start: 20150826
  11. IRON PILLS [Concomitant]
     Active Substance: IRON

REACTIONS (7)
  - Fatigue [None]
  - Headache [None]
  - Loss of consciousness [None]
  - Major depression [None]
  - Migraine [None]
  - Asthenia [None]
  - Nightmare [None]

NARRATIVE: CASE EVENT DATE: 20150830
